FAERS Safety Report 6343456-X (Version None)
Quarter: 2009Q3

REPORT INFORMATION
  Report Type: 
  Country: None (occurrence: None)
  Receive Date: 20090908
  Receipt Date: 20090824
  Transmission Date: 20100115
  Serious: Yes (Other)
  Sender: FDA-Public Use
  Company Number: US-PFIZER INC-2008035349

PATIENT
  Sex: Male
  Weight: 90.909 kg

DRUGS (9)
  1. CHANTIX [Suspect]
     Route: 048
     Dates: start: 20071201, end: 20080101
  2. DEPAKOTE [Suspect]
     Indication: BIPOLAR DISORDER
     Dosage: 1500 MG,EVERYDAY
  3. KLONOPIN [Suspect]
     Indication: ANXIETY
     Dosage: QHS EVERY DAY
     Dates: start: 20080101
  4. LITHIUM [Concomitant]
  5. PAROXETINE HCL [Concomitant]
  6. PRAVASTATIN [Concomitant]
     Indication: BLOOD CHOLESTEROL
  7. FISH OIL [Concomitant]
  8. RANITIDINE [Concomitant]
  9. MULTI-VITAMINS [Concomitant]

REACTIONS (12)
  - ANXIETY [None]
  - BLOOD CHOLESTEROL INCREASED [None]
  - DECREASED ACTIVITY [None]
  - DECREASED INTEREST [None]
  - DISTURBANCE IN ATTENTION [None]
  - HYPERSOMNIA [None]
  - LOSS OF LIBIDO [None]
  - LOW DENSITY LIPOPROTEIN INCREASED [None]
  - MEMORY IMPAIRMENT [None]
  - PERSONALITY CHANGE [None]
  - STRESS [None]
  - TARDIVE DYSKINESIA [None]
